FAERS Safety Report 12765264 (Version 1)
Quarter: 2016Q3

REPORT INFORMATION
  Report Type: Spontaneous
  Country: US (occurrence: US)
  Receive Date: 20160921
  Receipt Date: 20160921
  Transmission Date: 20161109
  Serious: No
  Sender: FDA-Public Use
  Company Number: US-PFIZER INC-2016433806

PATIENT
  Age: 69 Year
  Sex: Female

DRUGS (19)
  1. TYLENOL [Concomitant]
     Active Substance: ACETAMINOPHEN
     Dosage: 650 MG, UNK
     Route: 048
  2. ZESTRIL [Concomitant]
     Active Substance: LISINOPRIL
     Dosage: 5 MG, DAILY
     Route: 048
  3. OXYCODON [Concomitant]
     Active Substance: OXYCODONE
     Dosage: UNK, 4X/DAY
  4. TOPROL XL [Concomitant]
     Active Substance: METOPROLOL SUCCINATE
     Dosage: 0.5 DF, DAILY  (25MG XL TABLET)
     Route: 048
  5. VITAMIN D [Concomitant]
     Active Substance: CHOLECALCIFEROL
     Dosage: 1000 IU, UNK
     Route: 048
  6. TOUJEO [Concomitant]
     Active Substance: INSULIN GLARGINE
     Dosage: 20 IU, 1X/DAY ( NIGHTLY) (300 UNIT/ML)
  7. LIPITOR [Concomitant]
     Active Substance: ATORVASTATIN CALCIUM
     Indication: HYPERLIPIDAEMIA
     Dosage: 20 MG, UNK
  8. LIPITOR [Concomitant]
     Active Substance: ATORVASTATIN CALCIUM
     Dosage: 80 MG, 1X/DAY (NIGHTLY)
     Route: 048
  9. VOLTAREN [Concomitant]
     Active Substance: DICLOFENAC SODIUM
     Dosage: 75 MG, 2X/DAY
     Route: 048
  10. PRINIVIL [Concomitant]
     Active Substance: LISINOPRIL
     Dosage: 5 MG, DAILY
     Route: 048
  11. OXYCODONE HYDROCHLORIDE. [Concomitant]
     Active Substance: OXYCODONE HYDROCHLORIDE
     Indication: PAIN
     Dosage: 10 MG, AS NEEDED (3 TIMES DAILY)
     Route: 048
  12. ZOLOFT [Concomitant]
     Active Substance: SERTRALINE HYDROCHLORIDE
     Indication: DEPRESSION
     Dosage: 100 MG, DAILY
     Route: 048
  13. ASPIRIN E.C [Concomitant]
     Active Substance: ASPIRIN
     Dosage: 325 MG, UNK
     Route: 048
  14. TEMOVATE [Concomitant]
     Active Substance: CLOBETASOL PROPIONATE
     Dosage: UNK, 2X/DAY (1 APPLICATION TO THE SKIN 2 TIMES DAILY)
  15. LYRICA [Suspect]
     Active Substance: PREGABALIN
     Dosage: 75 MG, 3X/DAY
     Route: 048
  16. TYLENOL [Concomitant]
     Active Substance: ACETAMINOPHEN
     Dosage: 650 UNK, UNK
     Route: 048
  17. PRILOSEC [Concomitant]
     Active Substance: OMEPRAZOLE MAGNESIUM
     Dosage: 40 MG, DAILY
     Route: 048
  18. LIDOCAINE. [Concomitant]
     Active Substance: LIDOCAINE
     Indication: PAIN
     Dosage: UNK, AS NEEDED (APPLY 1 APPLICATION TO THE SKIN 2 TIMES DAILY )
  19. AMBIEN [Concomitant]
     Active Substance: ZOLPIDEM TARTRATE
     Indication: INSOMNIA
     Dosage: 10 MG, AS NEEDED (1 TABLET BY MOUTH NIGHTLY )
     Route: 048

REACTIONS (1)
  - Tremor [Unknown]
